FAERS Safety Report 4971615-7 (Version None)
Quarter: 2006Q2

REPORT INFORMATION
  Report Type: 
  Country: None (occurrence: None)
  Receive Date: 20060413
  Receipt Date: 20060404
  Transmission Date: 20061013
  Serious: Yes (Life-Threatening)
  Sender: FDA-Public Use
  Company Number: CZ-JNJFOC-20060401420

PATIENT
  Sex: Female
  Weight: 75 kg

DRUGS (2)
  1. RISPERDAL CONSTA [Suspect]
     Route: 030
  2. RISPERIDONE [Concomitant]
     Route: 048

REACTIONS (1)
  - RENAL CELL CARCINOMA STAGE UNSPECIFIED [None]
